FAERS Safety Report 12203856 (Version 1)
Quarter: 2016Q1

REPORT INFORMATION
  Report Type: Spontaneous
  Country: US (occurrence: US)
  Receive Date: 20160323
  Receipt Date: 20160323
  Transmission Date: 20160526
  Serious: No
  Sender: FDA-Public Use
  Company Number: US-MALLINCKRODT-T201506244

PATIENT
  Age: 38 Year
  Sex: Female
  Weight: 43 kg

DRUGS (6)
  1. POTASSIUM [Concomitant]
     Active Substance: POTASSIUM
  2. INSULIN [Concomitant]
     Active Substance: INSULIN NOS
  3. PREDNISONE. [Concomitant]
     Active Substance: PREDNISONE
  4. LANTUS [Concomitant]
     Active Substance: INSULIN GLARGINE
  5. ACDA [Concomitant]
     Dosage: A/C RATIO USED 10:1
     Dates: end: 20150909
  6. UVADEX [Suspect]
     Active Substance: METHOXSALEN
     Indication: GRAFT VERSUS HOST DISEASE
     Dosage: UNK
     Route: 065
     Dates: end: 20150909

REACTIONS (1)
  - Headache [Unknown]

NARRATIVE: CASE EVENT DATE: 20150909
